FAERS Safety Report 10083335 (Version 1)
Quarter: 2014Q2

REPORT INFORMATION
  Report Type: Spontaneous
  Country: IT (occurrence: IT)
  Receive Date: 20140417
  Receipt Date: 20140417
  Transmission Date: 20141212
  Serious: Yes (Other)
  Sender: FDA-Public Use
  Company Number: IT-RANBAXY-2014R1-80382

PATIENT
  Age: 4 Year
  Sex: 0

DRUGS (2)
  1. IBUPROFEN [Suspect]
     Indication: ARTHRITIS
     Route: 065
  2. INDOMETHACIN [Suspect]
     Indication: ARTHRITIS
     Route: 065

REACTIONS (1)
  - Haematemesis [Unknown]
